FAERS Safety Report 15768366 (Version 1)
Quarter: 2018Q4

REPORT INFORMATION
  Report Type: Spontaneous
  Country: JP (occurrence: JP)
  Receive Date: 20181227
  Receipt Date: 20181227
  Transmission Date: 20190205
  Serious: Yes (Other)
  Sender: FDA-Public Use
  Company Number: PHHY2018JP192528

PATIENT

DRUGS (3)
  1. OZAGREL [Concomitant]
     Active Substance: OZAGREL
     Indication: PRODUCT USED FOR UNKNOWN INDICATION
     Route: 065
  2. NOVASTAN [Suspect]
     Active Substance: ARGATROBAN
     Indication: TRANSIENT ISCHAEMIC ATTACK
     Dosage: UNK
     Route: 041
     Dates: start: 20181212, end: 20181213
  3. EDARAVONE [Concomitant]
     Active Substance: EDARAVONE
     Indication: PRODUCT USED FOR UNKNOWN INDICATION
     Route: 065

REACTIONS (2)
  - Hemiplegia [Unknown]
  - Product administration error [Unknown]

NARRATIVE: CASE EVENT DATE: 20181214
